FAERS Safety Report 5261184-9 (Version None)
Quarter: 2007Q1

REPORT INFORMATION
  Report Type: 
  Country: None (occurrence: None)
  Receive Date: 20070309
  Receipt Date: 20070227
  Transmission Date: 20070707
  Serious: Yes (Hospitalization)
  Sender: FDA-Public Use
  Company Number: JP-PFIZER INC-2007010035

PATIENT
  Sex: Male
  Weight: 44.6 kg

DRUGS (13)
  1. VFEND [Suspect]
     Indication: BRONCHOPULMONARY ASPERGILLOSIS
     Dosage: DAILY DOSE:280MG
     Route: 042
     Dates: start: 20070130, end: 20070204
  2. PRIMOBOLAN [Suspect]
     Indication: MYELODYSPLASTIC SYNDROME
     Route: 048
     Dates: start: 20061221, end: 20070215
  3. BUP-4 [Suspect]
     Indication: NEUROGENIC BLADDER
     Route: 048
     Dates: start: 20070130, end: 20070206
  4. ITRACONAZOLE [Concomitant]
     Indication: BRONCHOPULMONARY ASPERGILLOSIS
     Route: 048
  5. FLIVAS [Concomitant]
     Indication: BENIGN PROSTATIC HYPERPLASIA
     Route: 048
  6. UNIPHYL [Concomitant]
     Indication: EMPHYSEMA
     Route: 048
  7. GASTER [Concomitant]
     Indication: GASTRIC MUCOSAL LESION
     Route: 048
  8. SELBEX [Concomitant]
     Indication: GASTRIC MUCOSAL LESION
     Route: 048
  9. RYTHMODAN - SLOW RELEASE [Concomitant]
     Route: 048
  10. FOLIAMIN [Concomitant]
     Indication: ANAEMIA MACROCYTIC
     Route: 048
  11. CYANOCOBALAMIN [Concomitant]
     Indication: ANAEMIA MACROCYTIC
     Route: 048
  12. PURSENNID [Concomitant]
     Indication: CONSTIPATION
     Route: 048
  13. MAXIPIME [Concomitant]
     Route: 042
     Dates: start: 20070126, end: 20070129

REACTIONS (3)
  - DELIRIUM [None]
  - INAPPROPRIATE ANTIDIURETIC HORMONE SECRETION [None]
  - PHOTOPHOBIA [None]
